FAERS Safety Report 5256159-X (Version None)
Quarter: 2007Q1

REPORT INFORMATION
  Report Type: 
  Country: None (occurrence: None)
  Receive Date: 20070302
  Receipt Date: 20070302
  Transmission Date: 20070707
  Serious: Yes (Life-Threatening, Hospitalization)
  Sender: FDA-Public Use
  Company Number: None

PATIENT
  Age: 95 Year
  Sex: Male
  Weight: 88.45 kg

DRUGS (16)
  1. BACTRIM DS [Suspect]
     Indication: SKIN LESION
     Dosage: 800MG SULFA/160MG TRIMETHOPRIM TWICE A DAY PO
     Route: 048
  2. TOPROL-XL [Concomitant]
  3. ASCORBIC ACID [Concomitant]
  4. ARICEPT [Concomitant]
  5. METAMUCIL [Concomitant]
  6. CALCIUM CARBONATE [Concomitant]
  7. VICODIN [Concomitant]
  8. DACODYL [Concomitant]
  9. PHENERGAN HCL [Concomitant]
  10. TYLENOL [Concomitant]
  11. MILK OF MAGNESIA [Concomitant]
  12. SENNA-S [Concomitant]
  13. MYLANTA [Concomitant]
  14. IMODIUM [Concomitant]
  15. GUAIFENESIN [Concomitant]
  16. HEPARIN [Concomitant]

REACTIONS (10)
  - BLISTER [None]
  - DYSPNOEA [None]
  - ERYTHEMA [None]
  - FLUSHING [None]
  - PETECHIAE [None]
  - RASH [None]
  - SKIN WARM [None]
  - UNRESPONSIVE TO STIMULI [None]
  - URINARY TRACT INFECTION [None]
  - WOUND [None]
